FAERS Safety Report 24752933 (Version 2)
Quarter: 2024Q4

REPORT INFORMATION
  Report Type: Report from Study
  Country: US (occurrence: US)
  Receive Date: 20241219
  Receipt Date: 20241228
  Transmission Date: 20250115
  Serious: Yes (Other)
  Sender: AMGEN
  Company Number: US-AMGEN-USASP2024246467

PATIENT
  Age: 77 Year
  Sex: Female

DRUGS (2)
  1. AMJEVITA [Suspect]
     Active Substance: ADALIMUMAB-ATTO
     Indication: Arthritis
     Dosage: 40 MILLIGRAM, Q2WK
     Route: 065
  2. AMJEVITA [Suspect]
     Active Substance: ADALIMUMAB-ATTO
     Dosage: 40 MILLIGRAM, Q2WK
     Route: 065
     Dates: start: 20241212

REACTIONS (3)
  - Hip surgery [Unknown]
  - Drug dose omission by device [Unknown]
  - Device difficult to use [Unknown]

NARRATIVE: CASE EVENT DATE: 20241212
